FAERS Safety Report 6387614-7 (Version None)
Quarter: 2009Q4

REPORT INFORMATION
  Report Type: 
  Country: None (occurrence: None)
  Receive Date: 20091005
  Receipt Date: 20090925
  Transmission Date: 20100525
  Serious: Yes (Hospitalization)
  Sender: FDA-Public Use
  Company Number: FR-JNJFOC-20090907676

PATIENT
  Sex: Female

DRUGS (2)
  1. DURAGESIC-100 [Suspect]
     Indication: BACK PAIN
     Route: 062
     Dates: start: 20070622, end: 20070623
  2. CEFTRIAXONE [Concomitant]
     Indication: URINARY TRACT INFECTION
     Route: 042
     Dates: start: 20070623, end: 20070626

REACTIONS (1)
  - DYSURIA [None]
